FAERS Safety Report 8064940-7 (Version None)
Quarter: 2012Q1

REPORT INFORMATION
  Report Type: 
  Country: None (occurrence: None)
  Receive Date: 20120124
  Receipt Date: 20120117
  Transmission Date: 20120608
  Serious: No
  Sender: FDA-Public Use
  Company Number: US-BIOGENIDEC-2012BI001940

PATIENT
  Sex: Female

DRUGS (3)
  1. TYSABRI [Suspect]
     Indication: MULTIPLE SCLEROSIS
     Route: 042
     Dates: start: 20110922
  2. COPAXONE [Concomitant]
     Indication: MULTIPLE SCLEROSIS
  3. ALPRAZOLAM [Concomitant]
     Indication: NERVOUSNESS

REACTIONS (2)
  - ENERGY INCREASED [None]
  - NERVOUSNESS [None]
